FAERS Safety Report 10301727 (Version 1)
Quarter: 2014Q3

REPORT INFORMATION
  Report Type: Spontaneous
  Country: PR (occurrence: None)
  Receive Date: 20140709
  Receipt Date: 20140709
  Transmission Date: 20150326
  Serious: Yes (Hospitalization)
  Sender: FDA-Public Use
  Company Number: None

PATIENT
  Age: 73 Year
  Sex: Male
  Weight: 77.11 kg

DRUGS (2)
  1. SUPREP BOWEL PREP [Suspect]
     Active Substance: MAGNESIUM SULFATE\POTASSIUM SULFATE\SODIUM SULFATE
     Indication: COLONOSCOPY
     Dosage: AS DIRECTED IN PACK ?
     Dates: start: 20140518, end: 20140519
  2. SUPREP BOWEL PREP [Suspect]
     Active Substance: MAGNESIUM SULFATE\POTASSIUM SULFATE\SODIUM SULFATE
     Indication: BOWEL PREPARATION
     Dosage: AS DIRECTED IN PACK ?
     Dates: start: 20140518, end: 20140519

REACTIONS (14)
  - Hypertension [None]
  - Arrhythmia [None]
  - Abasia [None]
  - Blood creatinine increased [None]
  - Disorientation [None]
  - Dehydration [None]
  - Condition aggravated [None]
  - Neurogenic bladder [None]
  - Hyponatraemia [None]
  - Cauda equina syndrome [None]
  - Atrial fibrillation [None]
  - Metabolic encephalopathy [None]
  - Intervertebral disc protrusion [None]
  - Blood urea increased [None]

NARRATIVE: CASE EVENT DATE: 20140522
